FAERS Safety Report 8964080 (Version 2)
Quarter: 2012Q4

REPORT INFORMATION
  Report Type: Report from Study
  Country: US (occurrence: US)
  Receive Date: 20121213
  Receipt Date: 20121220
  Transmission Date: 20130627
  Serious: Yes (Hospitalization)
  Sender: FDA-Public Use
  Company Number: US-GLAXOSMITHKLINE-A1005132A

PATIENT
  Age: 82 Year
  Sex: Female
  Weight: 74.5 kg

DRUGS (8)
  1. PAZOPANIB [Suspect]
     Indication: LIPOSARCOMA
     Dosage: 800MG Per day
     Route: 048
     Dates: start: 20120927
  2. ATENOLOL [Concomitant]
  3. COUMADIN [Concomitant]
  4. GLUCOPHAGE [Concomitant]
     Dosage: 500MG Three times per day
  5. LISINOPRIL [Concomitant]
  6. ONGLYZA [Concomitant]
  7. TYLENOL [Concomitant]
  8. ZYRTEC [Concomitant]

REACTIONS (2)
  - Dehydration [Recovered/Resolved]
  - International normalised ratio increased [Recovered/Resolved]
